FAERS Safety Report 21229355 (Version 2)
Quarter: 2023Q2

REPORT INFORMATION
  Report Type: Report from Study
  Country: KR (occurrence: None)
  Receive Date: 20220818
  Receipt Date: 20230412
  Transmission Date: 20230721
  Serious: Yes (Hospitalization)
  Sender: FDA-Public Use
  Company Number: KR-Eisai Medical Research-EC-2022-121219

PATIENT
  Age: 58 Year
  Sex: Female
  Weight: 50.9 kg

DRUGS (15)
  1. LENVIMA [Suspect]
     Active Substance: LENVATINIB
     Indication: Endometrial cancer
     Route: 048
     Dates: start: 20220408, end: 20220429
  2. LENVIMA [Suspect]
     Active Substance: LENVATINIB
     Route: 048
     Dates: start: 20220504, end: 20220526
  3. LENVIMA [Suspect]
     Active Substance: LENVATINIB
     Route: 048
     Dates: start: 20220602, end: 20220608
  4. KEYTRUDA [Suspect]
     Active Substance: PEMBROLIZUMAB
     Indication: Endometrial cancer
     Route: 042
     Dates: start: 20220408, end: 20220527
  5. NEXIUM [Concomitant]
     Active Substance: ESOMEPRAZOLE MAGNESIUM
     Indication: Gastritis
     Dosage: FREQUENCY UNKNOWN
     Route: 042
     Dates: start: 20220331, end: 20220412
  6. NEXIUM [Concomitant]
     Active Substance: ESOMEPRAZOLE MAGNESIUM
     Route: 042
     Dates: start: 20220430, end: 20220502
  7. NEXIUM [Concomitant]
     Active Substance: ESOMEPRAZOLE MAGNESIUM
     Route: 042
     Dates: start: 20220504, end: 20220509
  8. NEXIUM [Concomitant]
     Active Substance: ESOMEPRAZOLE MAGNESIUM
     Route: 042
     Dates: start: 20220517, end: 20220604
  9. NUCYNTA ER [Concomitant]
     Active Substance: TAPENTADOL HYDROCHLORIDE
     Indication: Back pain
     Dosage: FREQUENCY UNKNOWN
     Route: 048
     Dates: start: 20220401, end: 20220412
  10. NUCYNTA ER [Concomitant]
     Active Substance: TAPENTADOL HYDROCHLORIDE
     Dosage: FREQUENCY UNKNOWN
     Route: 048
     Dates: start: 20220501, end: 20220523
  11. NUCYNTA ER [Concomitant]
     Active Substance: TAPENTADOL HYDROCHLORIDE
     Dosage: FREQUENCY UNKNOWN
     Route: 048
     Dates: start: 20220528, end: 20220602
  12. NALOXONE HYDROCHLORIDE\OXYCODONE HYDROCHLORIDE [Concomitant]
     Active Substance: NALOXONE HYDROCHLORIDE\OXYCODONE HYDROCHLORIDE
     Indication: Back pain
     Dosage: 2 TABLETS; FREQUENCY UNKNOWN
     Route: 048
     Dates: start: 20220405, end: 20220430
  13. NALOXONE HYDROCHLORIDE\OXYCODONE HYDROCHLORIDE [Concomitant]
     Active Substance: NALOXONE HYDROCHLORIDE\OXYCODONE HYDROCHLORIDE
     Dosage: 10/5; 2 TABLETS; FREQUENCY UNKNOWN
     Route: 048
     Dates: start: 20220524, end: 20220605
  14. NALOXONE HYDROCHLORIDE\OXYCODONE HYDROCHLORIDE [Concomitant]
     Active Substance: NALOXONE HYDROCHLORIDE\OXYCODONE HYDROCHLORIDE
     Dosage: 20/10; 2 TABLETS; FREQUENCY UNKNOWN
     Route: 048
     Dates: start: 20220501, end: 20220605
  15. MEPERIDINE [Concomitant]
     Active Substance: MEPERIDINE
     Indication: Back pain
     Route: 030
     Dates: start: 20220503, end: 20220503

REACTIONS (2)
  - Hyperkalaemia [Recovered/Resolved]
  - Asthenia [Recovered/Resolved]

NARRATIVE: CASE EVENT DATE: 20220421
